FAERS Safety Report 11197162 (Version 2)
Quarter: 2015Q2

REPORT INFORMATION
  Report Type: Report from Study
  Country: BR (occurrence: BR)
  Receive Date: 20150617
  Receipt Date: 20150625
  Transmission Date: 20150821
  Serious: Yes (Hospitalization, Other)
  Sender: FDA-Public Use
  Company Number: BR-ABBVIE-15K-020-1407752-00

PATIENT
  Sex: Female
  Weight: 75 kg

DRUGS (10)
  1. MESALAZINE [Concomitant]
     Active Substance: MESALAMINE
     Indication: COLITIS
  2. MESALAZINE [Concomitant]
     Active Substance: MESALAMINE
     Route: 048
  3. HUMIRA [Suspect]
     Active Substance: ADALIMUMAB
     Route: 058
     Dates: start: 201503, end: 20150430
  4. AZATHIOPRINE. [Concomitant]
     Active Substance: AZATHIOPRINE
     Indication: CROHN^S DISEASE
     Route: 048
     Dates: start: 201505
  5. PREDNISONE. [Concomitant]
     Active Substance: PREDNISONE
     Indication: CROHN^S DISEASE
     Route: 048
     Dates: start: 201505
  6. HUMIRA [Suspect]
     Active Substance: ADALIMUMAB
     Indication: CROHN^S DISEASE
     Dosage: INDUCTION DOSE
     Route: 058
     Dates: start: 20150219, end: 20150219
  7. HUMIRA [Suspect]
     Active Substance: ADALIMUMAB
     Route: 058
     Dates: start: 2015, end: 201505
  8. PREDNISONE. [Concomitant]
     Active Substance: PREDNISONE
  9. HUMIRA [Suspect]
     Active Substance: ADALIMUMAB
     Dosage: INDUCTION DOSE
     Route: 058
     Dates: start: 2015, end: 2015
  10. PREDNISONE. [Concomitant]
     Active Substance: PREDNISONE

REACTIONS (15)
  - Aphthous stomatitis [Recovered/Resolved]
  - Proctalgia [Recovering/Resolving]
  - Crohn^s disease [Recovering/Resolving]
  - Hypovitaminosis [Unknown]
  - Thrombosis [Recovering/Resolving]
  - Anaemia [Recovering/Resolving]
  - Asthenia [Recovering/Resolving]
  - Pus in stool [Recovering/Resolving]
  - Mineral deficiency [Unknown]
  - Protein deficiency [Unknown]
  - Proctalgia [Recovering/Resolving]
  - Anal haemorrhage [Recovering/Resolving]
  - Rectal tenesmus [Recovering/Resolving]
  - Drug ineffective [Not Recovered/Not Resolved]
  - Haematochezia [Recovering/Resolving]

NARRATIVE: CASE EVENT DATE: 2015
